FAERS Safety Report 21594749 (Version 4)
Quarter: 2022Q4

REPORT INFORMATION
  Report Type: Spontaneous
  Country: US (occurrence: US)
  Receive Date: 20221115
  Receipt Date: 20221223
  Transmission Date: 20230113
  Serious: Yes (Death)
  Sender: FDA-Public Use
  Company Number: US-Ipsen Biopharmaceuticals, Inc.-2022-30991

PATIENT
  Age: 81 Year
  Sex: Female

DRUGS (8)
  1. DYSPORT [Suspect]
     Active Substance: ABOBOTULINUMTOXINA
     Indication: Torticollis
     Dosage: NOT REPORTED
     Route: 030
     Dates: start: 20150901, end: 20150901
  2. ATORVASTATIN [Concomitant]
     Active Substance: ATORVASTATIN
     Dosage: TAB
  3. BACLOFEN [Concomitant]
     Active Substance: BACLOFEN
     Dosage: TAB
  4. CLONAZEPAM [Concomitant]
     Active Substance: CLONAZEPAM
     Dosage: 1 TAB
  5. OSCAL [Concomitant]
     Active Substance: CALCIUM CARBONATE
     Dosage: 500/TAB 200D-3
  6. RALOXIFENE [Concomitant]
     Active Substance: RALOXIFENE
     Dosage: TAB
  7. SERTRALINE [Concomitant]
     Active Substance: SERTRALINE HYDROCHLORIDE
  8. SYNTHROID [Concomitant]
     Active Substance: LEVOTHYROXINE SODIUM

REACTIONS (1)
  - Death [Fatal]

NARRATIVE: CASE EVENT DATE: 20221021
